FAERS Safety Report 12896568 (Version 2)
Quarter: 2016Q4

REPORT INFORMATION
  Report Type: Report from Study
  Country: BG (occurrence: BG)
  Receive Date: 20161031
  Receipt Date: 20161110
  Transmission Date: 20170207
  Serious: Yes (Death, Hospitalization)
  Sender: FDA-Public Use
  Company Number: BG-AMGEN-BGRSL2016068871

PATIENT
  Age: 71 Year
  Sex: Female
  Weight: 62 kg

DRUGS (3)
  1. VECTIBIX [Suspect]
     Active Substance: PANITUMUMAB
     Indication: COLORECTAL CANCER METASTATIC
     Dosage: 400 MG, TWO TIMES PER MONTH
     Route: 042
     Dates: start: 2016, end: 2016
  2. VECTIBIX [Suspect]
     Active Substance: PANITUMUMAB
     Dosage: 400 MG, TWO TIMES PER MONTH
     Route: 042
     Dates: start: 2016, end: 20160804
  3. VECTIBIX [Suspect]
     Active Substance: PANITUMUMAB
     Dosage: 300 MG, TWICE MONTHLY
     Route: 042
     Dates: start: 2016, end: 20160721

REACTIONS (10)
  - Rash pustular [Unknown]
  - Diarrhoea [Unknown]
  - Eyelid rash [Unknown]
  - Paraesthesia [Unknown]
  - Rash pruritic [Unknown]
  - Rash generalised [Not Recovered/Not Resolved]
  - Asthenia [Unknown]
  - Dry skin [Unknown]
  - Infarction [Fatal]
  - Skin haemorrhage [Unknown]

NARRATIVE: CASE EVENT DATE: 2016
